APPROVED DRUG PRODUCT: VANTIN
Active Ingredient: CEFPODOXIME PROXETIL
Strength: EQ 100MG BASE/5ML **Federal Register determination that product was not discontinued or withdrawn for safety or effectiveness reasons**
Dosage Form/Route: FOR SUSPENSION;ORAL
Application: N050675 | Product #002
Applicant: PFIZER INC
Approved: Aug 7, 1992 | RLD: Yes | RS: No | Type: DISCN